FAERS Safety Report 7478783-6 (Version None)
Quarter: 2011Q2

REPORT INFORMATION
  Report Type: 
  Country: None (occurrence: None)
  Receive Date: 20110513
  Receipt Date: 20110512
  Transmission Date: 20111010
  Serious: Yes (Disabling)
  Sender: FDA-Public Use
  Company Number: PT-ROCHE-748586

PATIENT
  Sex: Female
  Weight: 64 kg

DRUGS (4)
  1. OMEPRAZOLE [Concomitant]
     Indication: PROPHYLAXIS
     Route: 048
  2. PREDNISOLONE [Concomitant]
     Route: 048
  3. VALACYCLOVIR [Suspect]
     Indication: CYTOMEGALOVIRUS INFECTION
     Dosage: FORM: FILM COATED TABLET
     Route: 048
     Dates: start: 20101028, end: 20101103
  4. COTRIM [Concomitant]
     Indication: PROPHYLAXIS
     Route: 048

REACTIONS (3)
  - PAIN IN EXTREMITY [None]
  - ERYTHEMA [None]
  - OEDEMA PERIPHERAL [None]
